FAERS Safety Report 19640782 (Version 3)
Quarter: 2021Q3

REPORT INFORMATION
  Report Type: Spontaneous
  Country: US (occurrence: US)
  Receive Date: 20210730
  Receipt Date: 20210930
  Transmission Date: 20211014
  Serious: Yes (Other)
  Sender: FDA-Public Use
  Company Number: US-JNJFOC-20210741255

PATIENT
  Age: 6 Decade
  Sex: Female

DRUGS (21)
  1. ELMIRON [Suspect]
     Active Substance: PENTOSAN POLYSULFATE SODIUM
     Dosage: DOSAGE CHANGED TO 2 PER DAY AT SOME POINT, BUT PLAINTIFF DOES NOT REMEMBER WHEN
     Route: 048
     Dates: start: 2008, end: 2020
  2. NITROFURANTOIN MONOHYDRATE [Concomitant]
     Active Substance: NITROFURANTOIN MONOHYDRATE
     Indication: URINARY TRACT INFECTION
     Dates: start: 2014
  3. SPIRONOLACTONE. [Concomitant]
     Active Substance: SPIRONOLACTONE
     Indication: HYPERTENSION
     Dates: start: 2015
  4. CARISOPRODOL. [Concomitant]
     Active Substance: CARISOPRODOL
     Indication: MUSCLE RELAXANT THERAPY
     Dates: start: 2016
  5. PANTOPRAZOLE SODIUM. [Concomitant]
     Active Substance: PANTOPRAZOLE SODIUM
     Dates: start: 2017
  6. DULOXETINE HYDROCHLORIDE. [Concomitant]
     Active Substance: DULOXETINE HYDROCHLORIDE
     Indication: PAIN MANAGEMENT
     Dates: start: 2014
  7. CLOPIDOGREL [Concomitant]
     Active Substance: CLOPIDOGREL BISULFATE
     Indication: ANTICOAGULANT THERAPY
     Dates: start: 2015
  8. LOSARTAN POTASSIUM. [Concomitant]
     Active Substance: LOSARTAN POTASSIUM
     Indication: HYPERTENSION
     Dates: start: 2019
  9. HYDROCODONE/ACETAMINOPHEN [Concomitant]
     Active Substance: ACETAMINOPHEN\HYDROCODONE
     Indication: PAIN MANAGEMENT
     Dosage: 7.5 TO 750 MG
     Dates: start: 2010
  10. TROSPIUM CHLORIDE. [Concomitant]
     Active Substance: TROSPIUM CHLORIDE
     Indication: HYPERTONIC BLADDER
     Dates: start: 2008
  11. SYNTHROID [Concomitant]
     Active Substance: LEVOTHYROXINE SODIUM
     Indication: HYPOTHYROIDISM
     Dosage: 100 MCG
     Dates: start: 2015
  12. ELMIRON [Suspect]
     Active Substance: PENTOSAN POLYSULFATE SODIUM
     Route: 048
     Dates: start: 2005, end: 2008
  13. PRAMIPEXOLE. [Concomitant]
     Active Substance: PRAMIPEXOLE
     Dates: start: 2014
  14. DULOXETINE HYDROCHLORIDE. [Concomitant]
     Active Substance: DULOXETINE HYDROCHLORIDE
  15. PRAMOSONE [Concomitant]
     Active Substance: HYDROCORTISONE ACETATE\PRAMOXINE HYDROCHLORIDE
     Indication: SKIN DISORDER
     Dosage: 2.5% TO 1%
     Dates: start: 2014
  16. SANCTURA XR [Concomitant]
     Active Substance: TROSPIUM CHLORIDE
     Indication: HYPERTONIC BLADDER
     Dates: start: 2010
  17. METOPROLOL SUCCINATE. [Concomitant]
     Active Substance: METOPROLOL SUCCINATE
     Indication: CARDIAC DISORDER
     Dates: start: 2013
  18. FUROSEMIDE. [Concomitant]
     Active Substance: FUROSEMIDE
     Indication: DIURETIC THERAPY
     Dates: start: 2015
  19. FLORASTOR [LACTOBACILLUS ACIDOPHILUS] [Concomitant]
     Indication: GASTROINTESTINAL DISORDER
     Dates: start: 2015
  20. ELMIRON [Suspect]
     Active Substance: PENTOSAN POLYSULFATE SODIUM
     Indication: CYSTITIS INTERSTITIAL
     Route: 048
     Dates: start: 2005, end: 2020
  21. CYANOCOBALAMIN. [Concomitant]
     Active Substance: CYANOCOBALAMIN
     Indication: VITAMIN B COMPLEX DEFICIENCY
     Dosage: 1000 MCG/ML
     Dates: start: 2010

REACTIONS (5)
  - Retinal pigmentation [Unknown]
  - Off label use [Unknown]
  - Age-related macular degeneration [Not Recovered/Not Resolved]
  - Inappropriate schedule of product administration [Unknown]
  - Toxicity to various agents [Unknown]

NARRATIVE: CASE EVENT DATE: 2005
